FAERS Safety Report 5931514-0 (Version None)
Quarter: 2008Q4

REPORT INFORMATION
  Report Type: 
  Country: None (occurrence: None)
  Receive Date: 20081027
  Receipt Date: 20081023
  Transmission Date: 20090506
  Serious: Yes (Other)
  Sender: FDA-Public Use
  Company Number: A0753318A

PATIENT
  Age: 80 Year
  Sex: Male

DRUGS (3)
  1. REQUIP [Suspect]
     Indication: PARKINSON'S DISEASE
     Dosage: 3MG FOUR TIMES PER DAY
     Route: 048
     Dates: start: 20050101
  2. SINEMET [Suspect]
     Dosage: 1.5TAB VARIABLE DOSE
     Dates: start: 19980101
  3. COMTAN [Concomitant]

REACTIONS (4)
  - FEAR OF FALLING [None]
  - HALLUCINATION [None]
  - IMMOBILE [None]
  - PARKINSON'S DISEASE [None]
